FAERS Safety Report 26208150 (Version 1)
Quarter: 2025Q4

REPORT INFORMATION
  Report Type: Spontaneous
  Country: US (occurrence: US)
  Receive Date: 20251229
  Receipt Date: 20251229
  Transmission Date: 20260117
  Serious: Yes (Other)
  Sender: BRISTOL-MYERS SQUIBB COMPANY
  Company Number: US-BRISTOL-MYERS SQUIBB COMPANY-2025-173340

PATIENT
  Age: 72 Year
  Sex: Male
  Weight: 86.18 kg

DRUGS (1)
  1. POMALYST [Suspect]
     Active Substance: POMALIDOMIDE
     Indication: Prostate cancer
     Dosage: DAILY ON DAYS 1-21 OF A 28-DAY CYCLE
     Route: 048

REACTIONS (2)
  - Adverse event [Recovering/Resolving]
  - Off label use [Unknown]
